FAERS Safety Report 15253657 (Version 1)
Quarter: 2018Q3

REPORT INFORMATION
  Report Type: Report from Study
  Country: None (occurrence: DE)
  Receive Date: 20180808
  Receipt Date: 20180808
  Transmission Date: 20181010
  Serious: Yes (Hospitalization)
  Sender: FDA-Public Use
  Company Number: DE-ABBVIE-18K-062-2440040-00

PATIENT
  Age: 50 Year
  Sex: Female

DRUGS (4)
  1. MTX [Suspect]
     Active Substance: METHOTREXATE SODIUM
     Indication: RHEUMATIC DISORDER
     Route: 065
  2. MTX [Suspect]
     Active Substance: METHOTREXATE SODIUM
     Route: 065
  3. HUMIRA [Suspect]
     Active Substance: ADALIMUMAB
     Indication: RHEUMATIC DISORDER
     Route: 058
     Dates: start: 201309, end: 201405
  4. MTX [Suspect]
     Active Substance: METHOTREXATE SODIUM
     Route: 065

REACTIONS (3)
  - Device loosening [Unknown]
  - Device related infection [Unknown]
  - Hip arthroplasty [Unknown]

NARRATIVE: CASE EVENT DATE: 20170706
